FAERS Safety Report 6381077-3 (Version None)
Quarter: 2009Q3

REPORT INFORMATION
  Report Type: 
  Country: None (occurrence: None)
  Receive Date: 20090929
  Receipt Date: 20090923
  Transmission Date: 20100115
  Serious: Yes (Other)
  Sender: FDA-Public Use
  Company Number: US-JNJCH-2009025605

PATIENT
  Age: 82 Year
  Sex: Female
  Weight: 77.1 kg

DRUGS (1)
  1. LISTERINE WHITENING PRE-BRUSH RINSE [Suspect]
     Indication: DRUG USE FOR UNKNOWN INDICATION
     Dosage: TEXT:TWICE DAILY AS DIRECTED
     Route: 048
     Dates: start: 20090831, end: 20090922

REACTIONS (2)
  - APPLICATION SITE BURN [None]
  - ORAL MUCOSAL EXFOLIATION [None]
